FAERS Safety Report 13007699 (Version 2)
Quarter: 2017Q2

REPORT INFORMATION
  Report Type: Spontaneous
  Country: US (occurrence: US)
  Receive Date: 20161207
  Receipt Date: 20170515
  Transmission Date: 20170830
  Serious: Yes (Other)
  Sender: FDA-Public Use
  Company Number: US-BAYER-2016-230181

PATIENT
  Age: 80 Year
  Sex: Female
  Weight: 86.17 kg

DRUGS (2)
  1. ALEVE [Suspect]
     Active Substance: NAPROXEN SODIUM
     Indication: ARTHRALGIA
     Dosage: 1 DF, QD (1-2 DF)
     Route: 048
  2. ALEVE [Suspect]
     Active Substance: NAPROXEN SODIUM
     Indication: ARTHRALGIA
     Dosage: 1 DF, QD (1-2)
     Route: 048

REACTIONS (7)
  - Liquid product physical issue [Unknown]
  - Ulcer [None]
  - Incorrect drug administration duration [Unknown]
  - Ulcer [None]
  - Wrong technique in product usage process [Unknown]
  - Poor quality drug administered [Unknown]
  - Product physical issue [None]

NARRATIVE: CASE EVENT DATE: 201503
